FAERS Safety Report 25042166 (Version 1)
Quarter: 2025Q1

REPORT INFORMATION
  Report Type: Report from Study
  Country: EG (occurrence: EG)
  Receive Date: 20250305
  Receipt Date: 20250305
  Transmission Date: 20250409
  Serious: No
  Sender: SANDOZ
  Company Number: EG-SANDOZ-SDZ2025EG013189

PATIENT
  Age: 12 Year
  Sex: Female

DRUGS (1)
  1. OMNITROPE [Suspect]
     Active Substance: SOMATROPIN
     Indication: Product used for unknown indication
     Route: 058
     Dates: start: 20240601

REACTIONS (2)
  - Expired device used [Unknown]
  - Device issue [Unknown]

NARRATIVE: CASE EVENT DATE: 20240601
